FAERS Safety Report 4958121-0 (Version None)
Quarter: 2006Q1

REPORT INFORMATION
  Report Type: 
  Country: None (occurrence: None)
  Receive Date: 20060330
  Receipt Date: 20050426
  Transmission Date: 20060701
  Serious: Yes (Hospitalization)
  Sender: FDA-Public Use
  Company Number: US-MERCK-0504USA04847

PATIENT
  Age: 61 Year
  Sex: Female
  Weight: 77 kg

DRUGS (19)
  1. VIOXX [Suspect]
     Indication: ARTHRITIS
     Route: 048
     Dates: start: 20010226
  2. VIOXX [Suspect]
     Route: 048
     Dates: start: 20010724
  3. VIOXX [Suspect]
     Route: 048
     Dates: start: 20010920
  4. VIOXX [Suspect]
     Route: 048
     Dates: start: 20011114
  5. VIOXX [Suspect]
     Route: 048
     Dates: start: 20020615
  6. VIOXX [Suspect]
     Route: 048
     Dates: start: 20020701, end: 20040930
  7. METHOTREXATE [Concomitant]
     Route: 065
  8. PREDNISONE [Concomitant]
     Route: 065
  9. IMDUR [Concomitant]
     Route: 065
  10. MAXZIDE [Concomitant]
     Route: 065
  11. LIPITOR [Concomitant]
     Route: 065
  12. LIPITOR [Concomitant]
     Route: 065
  13. METOPROLOL [Concomitant]
     Route: 065
  14. ASPIRIN [Concomitant]
     Route: 065
  15. LOPRESSOR [Concomitant]
     Route: 065
  16. FOLIC ACID [Concomitant]
     Route: 065
  17. PREMARIN [Concomitant]
     Route: 065
  18. VITAMINS (UNSPECIFIED) [Concomitant]
     Route: 065
  19. BENICAR HCT [Concomitant]
     Indication: HYPERTENSION
     Route: 065

REACTIONS (8)
  - BRADYCARDIA [None]
  - CAROTID ARTERY STENOSIS [None]
  - CHEST PAIN [None]
  - DIARRHOEA [None]
  - DIZZINESS [None]
  - INJURY [None]
  - TACHYCARDIA [None]
  - TRANSIENT ISCHAEMIC ATTACK [None]
